FAERS Safety Report 4953930-6 (Version None)
Quarter: 2006Q1

REPORT INFORMATION
  Report Type: 
  Country: None (occurrence: None)
  Receive Date: 20060322
  Receipt Date: 20060306
  Transmission Date: 20060701
  Serious: Yes (Hospitalization)
  Sender: FDA-Public Use
  Company Number: MX200603001754

PATIENT
  Age: 48 Year
  Sex: Female

DRUGS (2)
  1. CYMBALTA [Suspect]
     Dosage: 60 MG, ORAL
     Route: 048
  2. ANTIDEPRESSANTS [Concomitant]

REACTIONS (2)
  - ANXIETY DISORDER [None]
  - PANIC DISORDER [None]
